FAERS Safety Report 12296839 (Version 2)
Quarter: 2016Q2

REPORT INFORMATION
  Report Type: Report from Study
  Country: GB (occurrence: GB)
  Receive Date: 20160422
  Receipt Date: 20160512
  Transmission Date: 20160815
  Serious: Yes (Hospitalization)
  Sender: FDA-Public Use
  Company Number: GB-VERTEX PHARMACEUTICALS-2016-002481

PATIENT
  Age: 40 Year
  Sex: Female
  Weight: 54 kg

DRUGS (25)
  1. LEVEMIR [Concomitant]
     Active Substance: INSULIN DETEMIR
  2. SERETIDE [Concomitant]
     Active Substance: FLUTICASONE PROPIONATE\SALMETEROL XINAFOATE
  3. COLISTIMETHATE SODIUM. [Concomitant]
     Active Substance: COLISTIMETHATE SODIUM
  4. CREON [Concomitant]
     Active Substance: PANCRELIPASE AMYLASE\PANCRELIPASE LIPASE\PANCRELIPASE PROTEASE
  5. NOVORAPID [Concomitant]
     Active Substance: INSULIN ASPART
  6. ORKAMBI [Suspect]
     Active Substance: IVACAFTOR\LUMACAFTOR
     Indication: CYSTIC FIBROSIS
     Dosage: 2 DF, BID
     Route: 048
     Dates: start: 20160223, end: 20160404
  7. MEROPENEM. [Suspect]
     Active Substance: MEROPENEM
     Indication: ANTIBIOTIC THERAPY
     Dosage: UNK
     Route: 065
     Dates: start: 20160222
  8. FERROUS FUMARATE [Concomitant]
     Active Substance: FERROUS FUMARATE
  9. MEGESTROL ACETATE. [Concomitant]
     Active Substance: MEGESTROL ACETATE
  10. VITAMIN E [Concomitant]
     Active Substance: .ALPHA.-TOCOPHEROL
  11. ACETYLCYSTEINE. [Concomitant]
     Active Substance: ACETYLCYSTEINE
  12. VITAMIN A AND D [Concomitant]
     Active Substance: LANOLIN\PETROLATUM
  13. HUMULIN S [Concomitant]
  14. LORAZEPAM. [Concomitant]
     Active Substance: LORAZEPAM
  15. NEBIVOLOL. [Concomitant]
     Active Substance: NEBIVOLOL
  16. CETIRIZINE [Concomitant]
     Active Substance: CETIRIZINE HYDROCHLORIDE
  17. CHLORHEXIDINE [Concomitant]
     Active Substance: CHLORHEXIDINE
  18. OLANZAPINE. [Concomitant]
     Active Substance: OLANZAPINE
  19. TIOTROPIUM [Concomitant]
     Active Substance: TIOTROPIUM
  20. DORNASE ALFA [Concomitant]
     Active Substance: DORNASE ALFA
  21. MONTELUKAST [Concomitant]
     Active Substance: MONTELUKAST SODIUM
  22. AZITHROMYCIN ANHYDROUS. [Concomitant]
     Active Substance: AZITHROMYCIN ANHYDROUS
  23. FLUCLOXACILLIN [Concomitant]
     Active Substance: FLUCLOXACILLIN
  24. OMEPRAZOLE. [Concomitant]
     Active Substance: OMEPRAZOLE
  25. SALBUTAMOL [Concomitant]
     Active Substance: ALBUTEROL

REACTIONS (10)
  - Oxygen saturation decreased [Unknown]
  - Abnormal loss of weight [Unknown]
  - Nausea [Recovered/Resolved]
  - Decreased appetite [Recovered/Resolved]
  - Vomiting [Recovered/Resolved]
  - Dyspnoea [Recovered/Resolved]
  - Malaise [Unknown]
  - Pyrexia [Unknown]
  - Sputum increased [Unknown]
  - Fatigue [Unknown]

NARRATIVE: CASE EVENT DATE: 20160224
